FAERS Safety Report 14607746 (Version 1)
Quarter: 2018Q1

REPORT INFORMATION
  Report Type: Spontaneous
  Country: US (occurrence: US)
  Receive Date: 20180307
  Receipt Date: 20180307
  Transmission Date: 20180509
  Serious: No
  Sender: FDA-Public Use
  Company Number: US-GLAXOSMITHKLINE-US2018035467

PATIENT
  Age: 49 Year
  Sex: Female

DRUGS (5)
  1. LAMOTRIGINE. [Suspect]
     Active Substance: LAMOTRIGINE
     Dosage: 100 MG, QD
  2. LAMICTAL [Suspect]
     Active Substance: LAMOTRIGINE
     Dosage: 50 MG, QD
     Dates: start: 201801
  3. LITHIUM. [Concomitant]
     Active Substance: LITHIUM
  4. LAMOTRIGINE. [Suspect]
     Active Substance: LAMOTRIGINE
     Dosage: 50 MG, QD
     Dates: start: 201801
  5. LAMICTAL [Suspect]
     Active Substance: LAMOTRIGINE
     Dosage: 100 MG, QD

REACTIONS (18)
  - Pain [Unknown]
  - Rash [Not Recovered/Not Resolved]
  - Influenza like illness [Unknown]
  - Rash erythematous [Unknown]
  - Rash generalised [Unknown]
  - Lymphadenopathy [Unknown]
  - Urticaria [Unknown]
  - Pyrexia [Unknown]
  - Skin exfoliation [Not Recovered/Not Resolved]
  - Headache [Not Recovered/Not Resolved]
  - Nausea [Unknown]
  - Insomnia [Unknown]
  - Dizziness [Not Recovered/Not Resolved]
  - Coordination abnormal [Not Recovered/Not Resolved]
  - Speech disorder [Unknown]
  - Pruritus [Not Recovered/Not Resolved]
  - Chills [Unknown]
  - Rash vesicular [Unknown]

NARRATIVE: CASE EVENT DATE: 20180212
